FAERS Safety Report 7157664-1 (Version None)
Quarter: 2010Q4

REPORT INFORMATION
  Report Type: 
  Country: None (occurrence: None)
  Receive Date: 20101214
  Receipt Date: 20100311
  Transmission Date: 20110411
  Serious: Yes (Hospitalization, Other)
  Sender: FDA-Public Use
  Company Number: US-ASTRAZENECA-2010SE10929

PATIENT
  Age: 52 Year
  Sex: Female

DRUGS (25)
  1. CRESTOR [Suspect]
     Route: 048
  2. TRICOR [Suspect]
     Route: 065
  3. LISINOPRIL AND HYDROCHLOROTHIAZIDE [Concomitant]
     Dosage: 20/25 MG DAILY
     Route: 048
  4. ADVAIR DISKUS 100/50 [Concomitant]
     Dosage: 250/50 BID
  5. SINGULAIR [Concomitant]
  6. LOROITIDINE [Concomitant]
  7. GLIPIZIDE [Concomitant]
  8. FLEXERIL [Concomitant]
  9. CELEBREX [Concomitant]
  10. ENABLEX [Concomitant]
  11. CYMBALTA [Concomitant]
  12. FLONASE [Concomitant]
  13. NOSTRIL [Concomitant]
     Dosage: BID
  14. METFORMIN [Concomitant]
  15. CALCIUM [Concomitant]
  16. VIT D [Concomitant]
  17. GLUCOSOMINE [Concomitant]
     Dosage: DAILY
  18. FISH OIL [Concomitant]
  19. LANTUS [Concomitant]
  20. LIDODERM [Concomitant]
  21. LYRICA [Concomitant]
  22. SYNTHROID [Concomitant]
  23. PROVENTIL [Concomitant]
  24. PROTONIX [Concomitant]
  25. PERCOCET [Concomitant]
     Dosage: 10/325 QID

REACTIONS (2)
  - RENAL FAILURE ACUTE [None]
  - RHABDOMYOLYSIS [None]
